FAERS Safety Report 23672502 (Version 1)
Quarter: 2024Q1

REPORT INFORMATION
  Report Type: Spontaneous
  Country: RO (occurrence: RO)
  Receive Date: 20240326
  Receipt Date: 20240326
  Transmission Date: 20240410
  Serious: Yes (Life-Threatening, Hospitalization)
  Sender: FDA-Public Use
  Company Number: RO-ROMPHARMP-202403051

PATIENT
  Age: 53 Year
  Sex: Female

DRUGS (8)
  1. DEXAMETHASONE [Suspect]
     Active Substance: DEXAMETHASONE
     Indication: Plasmablastic lymphoma
     Dosage: CHEMOTHERAPY PROTOCOL HYPER-CVAD/MA
     Route: 065
     Dates: start: 2023
  2. CYCLOPHOSPHAMIDE [Suspect]
     Active Substance: CYCLOPHOSPHAMIDE
     Indication: Plasmablastic lymphoma
     Dosage: CHEMOTHERAPY PROTOCOL HYPER-CVAD/MA (HYPER-FRACTIONATED CYCLOPHOSPHAMIDE)
     Route: 065
     Dates: start: 2023
  3. CYTARABINE [Suspect]
     Active Substance: CYTARABINE
     Indication: Plasmablastic lymphoma
     Dosage: CHEMOTHERAPY PROTOCOL HYPER-CVAD/MA
     Route: 065
     Dates: start: 2023
  4. VINCRISTINE [Suspect]
     Active Substance: VINCRISTINE
     Indication: Plasmablastic lymphoma
     Dosage: CHEMOTHERAPY PROTOCOL HYPER-CVAD/MA
     Route: 065
     Dates: start: 2023
  5. DOXORUBICIN [Suspect]
     Active Substance: DOXORUBICIN
     Indication: Plasmablastic lymphoma
     Dosage: CHEMOTHERAPY PROTOCOL HYPER-CVAD/MA
     Route: 065
     Dates: start: 2023
  6. METHOTREXATE [Suspect]
     Active Substance: METHOTREXATE
     Indication: Plasmablastic lymphoma
     Dosage: CHEMOTHERAPY PROTOCOL HYPER-CVAD/MA
     Route: 065
     Dates: start: 2023
  7. BICTEGRAVIR\EMTRICITABINE\TENOFOVIR ALAFENAMIDE [Concomitant]
     Active Substance: BICTEGRAVIR\EMTRICITABINE\TENOFOVIR ALAFENAMIDE
     Indication: HIV infection CDC category C
     Dosage: 1CP/DAY
     Route: 065
     Dates: start: 202303
  8. GRANULOCYTE COLONY-STIMULATING FACTOR NOS [Concomitant]
     Active Substance: GRANULOCYTE COLONY-STIMULATING FACTOR NOS
     Indication: Prophylaxis
     Route: 065
     Dates: start: 2023

REACTIONS (9)
  - Disseminated intravascular coagulation [Unknown]
  - Anal fistula [Unknown]
  - Sepsis [Unknown]
  - Bone marrow failure [Unknown]
  - Pneumonia klebsiella [Unknown]
  - Escherichia infection [Unknown]
  - Cytomegalovirus chorioretinitis [Unknown]
  - Clostridium difficile colitis [Unknown]
  - Anal abscess [Unknown]

NARRATIVE: CASE EVENT DATE: 20230101
